FAERS Safety Report 6011334-1 (Version None)
Quarter: 2008Q4

REPORT INFORMATION
  Report Type: 
  Country: None (occurrence: None)
  Receive Date: 20081218
  Receipt Date: 20081208
  Transmission Date: 20090506
  Serious: Yes (Other)
  Sender: FDA-Public Use
  Company Number: CN-ROCHE-601438

PATIENT
  Age: 45 Year
  Sex: Female

DRUGS (14)
  1. CELLCEPT [Suspect]
     Indication: RENAL TRANSPLANT
     Dosage: MONTH 1 AFTER RENAL TRANSPLANT
     Route: 065
     Dates: start: 20020601
  2. XELODA [Suspect]
     Indication: CHEMOTHERAPY
     Route: 048
  3. PREDNISONE TAB [Suspect]
     Indication: RENAL TRANSPLANT
     Dosage: MONTH 1 AFTER RENAL TRANSPLANT
     Route: 065
     Dates: start: 20020601
  4. PREDNISONE TAB [Suspect]
     Dosage: MONTH 14
     Route: 065
     Dates: start: 20030701
  5. PREDNISONE TAB [Suspect]
     Dosage: MONTH 16
     Route: 065
     Dates: start: 20030901
  6. RAPAMYCIN [Suspect]
     Indication: RENAL TRANSPLANT
     Dosage: MONTH 1 AFTER RENAL TRANSPLANT
     Route: 065
     Dates: start: 20020601
  7. RAPAMYCIN [Suspect]
     Dosage: MONTH 5
     Route: 065
     Dates: start: 20021001
  8. PROGRAF [Suspect]
     Indication: RENAL TRANSPLANT
     Dosage: MONTH 8 AFTER RENAL TRANSPLANT
     Route: 065
     Dates: start: 20030101
  9. PROGRAF [Suspect]
     Dosage: MONTH 14. DOSE: 3MG AM, 2MG PM
     Route: 065
     Dates: start: 20030701
  10. PROGRAF [Suspect]
     Dosage: MONTH 59. DOSE: 2MG AM, 1MG PM
     Route: 065
  11. PROGRAF [Suspect]
     Dosage: MONTH 62. 1MG AM, 1.5MG PM
     Route: 065
  12. CARBOPLATIN [Suspect]
     Indication: CHEMOTHERAPY
     Dosage: MONTH 52. DOSE: AREA UNDER CURVE (AUC) 5, OVER 1H EVERY 4 WEEKS FOR 3 CYCLES
     Route: 042
  13. FEMARA [Suspect]
     Indication: CHEMOTHERAPY
     Route: 065
  14. TAXOL [Suspect]
     Indication: CHEMOTHERAPY
     Dosage: 3 WEEKS ON, 1 WEEKS OFF
     Route: 042

REACTIONS (3)
  - ADENOSQUAMOUS CARCINOMA OF THE CERVIX [None]
  - CEREBROVASCULAR ACCIDENT [None]
  - NEUTROPENIA [None]
